FAERS Safety Report 7767358-7 (Version None)
Quarter: 2011Q3

REPORT INFORMATION
  Report Type: 
  Country: None (occurrence: None)
  Receive Date: 20110922
  Receipt Date: 20100824
  Transmission Date: 20111222
  Serious: No
  Sender: FDA-Public Use
  Company Number: US-ASTRAZENECA-2008UW04651

PATIENT
  Age: 38 Year
  Sex: Male
  Weight: 142.9 kg

DRUGS (9)
  1. SEROQUEL [Suspect]
     Dosage: 25-400 MG
     Route: 048
     Dates: start: 20060414, end: 20070322
  2. SEROQUEL [Suspect]
     Indication: DEPRESSION
     Dosage: 600 TO 800 MG AT NIGHT
     Route: 048
     Dates: start: 20041011, end: 20070322
  3. SEROQUEL [Suspect]
     Indication: ANXIETY
     Dosage: 600 TO 800 MG AT NIGHT
     Route: 048
     Dates: start: 20041011, end: 20070322
  4. SEROQUEL [Suspect]
     Dosage: 25-400 MG
     Route: 048
     Dates: start: 20060414, end: 20070322
  5. ZOLOFT [Concomitant]
     Dosage: 100 TO 200 MG DAILY
     Dates: start: 20010101
  6. SEROQUEL [Suspect]
     Route: 048
     Dates: start: 20050101, end: 20070201
  7. TRILAFON [Concomitant]
     Dates: start: 20050101
  8. SEROQUEL [Suspect]
     Route: 048
     Dates: start: 20050101, end: 20070201
  9. BENZTROPINE MESYLATE [Concomitant]
     Dosage: 0.5 MG TO 4 MG
     Dates: start: 20050101

REACTIONS (5)
  - TYPE 2 DIABETES MELLITUS [None]
  - DIABETIC COMPLICATION [None]
  - BLOOD CHOLESTEROL INCREASED [None]
  - HYPERLIPIDAEMIA [None]
  - OBESITY [None]
